FAERS Safety Report 11514458 (Version 1)
Quarter: 2015Q3

REPORT INFORMATION
  Report Type: Spontaneous
  Country: US (occurrence: US)
  Receive Date: 20150916
  Receipt Date: 20150916
  Transmission Date: 20151125
  Serious: No
  Sender: FDA-Public Use
  Company Number: ALCN2015US005657

PATIENT
  Sex: Male

DRUGS (1)
  1. ATROPINE SULFATE. [Suspect]
     Active Substance: ATROPINE SULFATE
     Indication: PRODUCT USED FOR UNKNOWN INDICATION
     Dosage: 8 GTT, ONCE/SINGLE
     Route: 047
     Dates: start: 20150904, end: 20150904

REACTIONS (2)
  - Mydriasis [Recovering/Resolving]
  - Wrong drug administered [Recovered/Resolved]
